FAERS Safety Report 4367300-5 (Version None)
Quarter: 2004Q2

REPORT INFORMATION
  Report Type: 
  Country: None (occurrence: None)
  Receive Date: 20040601
  Receipt Date: 20040522
  Transmission Date: 20050107
  Serious: Yes (Other)
  Sender: FDA-Public Use
  Company Number: PHEH2004US05675

PATIENT
  Age: 69 Year
  Sex: Female

DRUGS (4)
  1. FORADIL [Suspect]
     Indication: CHRONIC OBSTRUCTIVE AIRWAYS DISEASE
     Dosage: 2 PUFFS/DAY
     Dates: start: 20040201, end: 20040401
  2. COMBIVENT [Concomitant]
  3. THEOPHYLLINE [Concomitant]
  4. OXYGEN THERAPY [Concomitant]

REACTIONS (6)
  - BLOOD PRESSURE INCREASED [None]
  - BRONCHITIS [None]
  - CHRONIC OBSTRUCTIVE AIRWAYS DISEASE EXACERBATED [None]
  - COUGH [None]
  - DYSPNOEA [None]
  - WHEEZING [None]
